FAERS Safety Report 19419246 (Version 3)
Quarter: 2021Q3

REPORT INFORMATION
  Report Type: Spontaneous
  Country: NL (occurrence: NL)
  Receive Date: 20210615
  Receipt Date: 20210902
  Transmission Date: 20211014
  Serious: Yes (Other)
  Sender: FDA-Public Use
  Company Number: NL-ROCHE-2845545

PATIENT
  Age: 52 Year
  Sex: Female
  Weight: 69.5 kg

DRUGS (2)
  1. MODERNA COVID?19 VACCINE [Suspect]
     Active Substance: CX-024414
     Indication: COVID-19 IMMUNISATION
     Route: 065
     Dates: start: 20210517
  2. TOCILIZUMAB. [Suspect]
     Active Substance: TOCILIZUMAB
     Indication: RHEUMATIC DISORDER
     Dosage: 162 MG/0,9 ML
     Route: 058
     Dates: start: 202104, end: 20210517

REACTIONS (8)
  - Malaise [Recovering/Resolving]
  - Chills [Recovered/Resolved]
  - Injection site swelling [Recovering/Resolving]
  - Nausea [Recovering/Resolving]
  - Injection site inflammation [Recovering/Resolving]
  - Deafness unilateral [Recovering/Resolving]
  - Injection site erythema [Recovering/Resolving]
  - Tinnitus [Recovering/Resolving]

NARRATIVE: CASE EVENT DATE: 20210517
